FAERS Safety Report 5311087-6 (Version None)
Quarter: 2007Q2

REPORT INFORMATION
  Report Type: 
  Country: None (occurrence: None)
  Receive Date: 20070423
  Receipt Date: 20070405
  Transmission Date: 20071010
  Serious: Yes (Hospitalization)
  Sender: FDA-Public Use
  Company Number: DSA_29632_2007

PATIENT
  Age: 74 Year
  Sex: Male

DRUGS (6)
  1. RENIVACE (RENIVACE) [Suspect]
     Indication: CARDIAC FAILURE
     Dosage: (10 MG BID ORAL)
     Route: 048
     Dates: end: 20070313
  2. ENALAPRIL MALEATE [Suspect]
     Dosage: 5 MG BID
  3. WARFARIN SODIUM [Concomitant]
  4. DIGOXIN [Concomitant]
  5. MEVALOTIN [Concomitant]
  6. PLETAL [Concomitant]

REACTIONS (3)
  - CARDIAC FAILURE [None]
  - CONDITION AGGRAVATED [None]
  - OVERDOSE [None]
